FAERS Safety Report 9793246 (Version 1)
Quarter: 2014Q1

REPORT INFORMATION
  Report Type: Spontaneous
  Country: US (occurrence: US)
  Receive Date: 20140102
  Receipt Date: 20140102
  Transmission Date: 20141002
  Serious: No
  Sender: FDA-Public Use
  Company Number: US-BAYER-2013-159587

PATIENT
  Sex: 0

DRUGS (3)
  1. ALKA-SELTZER ORIGINAL [Suspect]
  2. ALEVE CAPLET [Suspect]
  3. MUCINEX [Concomitant]

REACTIONS (1)
  - Drug ineffective [None]
